FAERS Safety Report 4677587-7 (Version None)
Quarter: 2005Q2

REPORT INFORMATION
  Report Type: 
  Country: None (occurrence: None)
  Receive Date: 20050527
  Receipt Date: 20050527
  Transmission Date: 20051028
  Serious: No
  Sender: FDA-Public Use
  Company Number: None

PATIENT
  Sex: Female
  Weight: 97.97 kg

DRUGS (2)
  1. ADRIAMYCIN PFS [Suspect]
     Indication: BREAST CANCER
     Dosage: 60 MG/M2 IV PER INST. GUIDELINES Q 14 D X 6 CYCLES
     Route: 042
     Dates: start: 20050211
  2. CYTOXAN [Suspect]
     Dosage: 600 MG/M2 IV PER INST. GUIDELINES Q 14 X 6 CYCLES
     Route: 042

REACTIONS (1)
  - PALMAR-PLANTAR ERYTHRODYSAESTHESIA SYNDROME [None]
